FAERS Safety Report 16171041 (Version 2)
Quarter: 2019Q2

REPORT INFORMATION
  Report Type: Spontaneous
  Country: RU (occurrence: RU)
  Receive Date: 20190408
  Receipt Date: 20190423
  Transmission Date: 20190711
  Serious: Yes (Other)
  Sender: FDA-Public Use
  Company Number: RU-HERITAGE PHARMACEUTICALS-2019HTG00117

PATIENT
  Age: 58 Year

DRUGS (11)
  1. RAMIPRIL. [Concomitant]
     Active Substance: RAMIPRIL
     Dosage: 5-10 MG
     Route: 065
  2. MYDOCALM [Concomitant]
     Dosage: 450 MG, 1X/DAY
     Route: 065
  3. ROSUVASTATIN. [Concomitant]
     Active Substance: ROSUVASTATIN
     Dosage: 20 MG
     Route: 065
  4. MELOXICAM. [Suspect]
     Active Substance: MELOXICAM
     Dosage: 15 MG, 1X/DAY, TABLETS
     Route: 065
  5. BISOPROLOL [Concomitant]
     Active Substance: BISOPROLOL
     Dosage: 5-10 MG
     Route: 065
  6. ACETYLSALICYLIC ACID [Concomitant]
     Active Substance: ASPIRIN
     Dosage: 100 MG
     Route: 065
  7. KETOPROFEN. [Suspect]
     Active Substance: KETOPROFEN
     Dosage: 100 MG, 1X/DAY
     Route: 030
     Dates: start: 201706, end: 20171012
  8. MELOXICAM. [Suspect]
     Active Substance: MELOXICAM
     Dosage: 15 MG, 1X/DAY
     Route: 030
  9. CLOPIDOGREL [Concomitant]
     Active Substance: CLOPIDOGREL BISULFATE
     Dosage: 75 MG
     Route: 065
  10. MELOXICAM. [Suspect]
     Active Substance: MELOXICAM
     Dosage: TAKEN OCCASIONALLY
     Route: 065
     Dates: end: 20171012
  11. EPLERENONE. [Concomitant]
     Active Substance: EPLERENONE
     Dosage: 25-50 MG
     Route: 065

REACTIONS (2)
  - Osteochondrosis [Recovered/Resolved]
  - Left ventricular dysfunction [Recovered/Resolved]
